FAERS Safety Report 7344924-4 (Version None)
Quarter: 2011Q1

REPORT INFORMATION
  Report Type: 
  Country: None (occurrence: None)
  Receive Date: 20110228
  Receipt Date: 20110211
  Transmission Date: 20110831
  Serious: Yes (Hospitalization)
  Sender: FDA-Public Use
  Company Number: 012247

PATIENT
  Age: 7 Year
  Sex: Female
  Weight: 20 kg

DRUGS (3)
  1. LEVETIRACETAM [Suspect]
     Indication: PARTIAL SEIZURES
     Dosage: (750 MG), (875 MG), (1000 MG)
     Dates: start: 20070101, end: 20070101
  2. LEVETIRACETAM [Suspect]
     Indication: PARTIAL SEIZURES
     Dosage: (750 MG), (875 MG), (1000 MG)
     Dates: start: 20070101
  3. LAMOTRIGINE [Concomitant]

REACTIONS (6)
  - CONVULSION [None]
  - SPEECH DISORDER [None]
  - ABDOMINAL PAIN [None]
  - TREMOR [None]
  - DISTURBANCE IN ATTENTION [None]
  - DEPRESSION [None]
